FAERS Safety Report 23161963 (Version 2)
Quarter: 2024Q4

REPORT INFORMATION
  Report Type: Spontaneous
  Country: US (occurrence: US)
  Receive Date: 20231109
  Receipt Date: 20241118
  Transmission Date: 20250115
  Serious: No
  Sender: PAREXEL
  Company Number: US-SECURA BIO, INC.-2023-SECUR-US000027

PATIENT

DRUGS (7)
  1. COPIKTRA [Suspect]
     Active Substance: DUVELISIB
     Indication: B-cell lymphoma
     Dosage: UNK
  2. COPIKTRA [Suspect]
     Active Substance: DUVELISIB
     Dosage: 25 MG, BID
     Route: 048
     Dates: start: 202302, end: 20230313
  3. COPIKTRA [Suspect]
     Active Substance: DUVELISIB
     Dosage: UNK
     Dates: start: 2023, end: 202310
  4. SPIRONOLACTONE [Concomitant]
     Active Substance: SPIRONOLACTONE
     Indication: Cardiac failure
     Dosage: 25 MG, DAILY
     Route: 065
  5. CARVEDILOL [Concomitant]
     Active Substance: CARVEDILOL
     Indication: Cardiac failure
     Dosage: 6.25 MG, BID
     Route: 065
  6. LISINOPRIL [Concomitant]
     Active Substance: LISINOPRIL
     Indication: Cardiac failure
     Dosage: 2.5 MG, DAILY
     Route: 065
  7. FERROUS SULFATE [Concomitant]
     Active Substance: FERROUS SULFATE
     Indication: Blood iron decreased
     Dosage: 45 MG, ONCE EVERY TWO DAYS
     Route: 065

REACTIONS (3)
  - Malaise [Unknown]
  - Product use issue [Unknown]
  - Product dose omission issue [Unknown]

NARRATIVE: CASE EVENT DATE: 20230313
